FAERS Safety Report 6032583-2 (Version None)
Quarter: 2009Q1

REPORT INFORMATION
  Report Type: 
  Country: None (occurrence: None)
  Receive Date: 20090109
  Receipt Date: 20081229
  Transmission Date: 20090719
  Serious: Yes (Other)
  Sender: FDA-Public Use
  Company Number: US-JNJFOC-20081206957

PATIENT
  Age: 51 Year
  Sex: Female

DRUGS (2)
  1. REMICADE [Suspect]
     Indication: PSORIATIC ARTHROPATHY
     Route: 042
  2. HUMIRIA [Concomitant]

REACTIONS (6)
  - PSORIATIC ARTHROPATHY [None]
  - RASH [None]
  - SKIN EXFOLIATION [None]
  - SKIN REACTION [None]
  - SURGERY [None]
  - URTICARIA [None]
